FAERS Safety Report 18993649 (Version 4)
Quarter: 2021Q2

REPORT INFORMATION
  Report Type: Report from Study
  Country: None (occurrence: CO)
  Receive Date: 20210311
  Receipt Date: 20210604
  Transmission Date: 20210717
  Serious: Yes (Death, Hospitalization, Other)
  Sender: FDA-Public Use
  Company Number: CO-ABBVIE-21K-036-3807715-00

PATIENT
  Age: 73 Year
  Sex: Female
  Weight: 65 kg

DRUGS (2)
  1. HUMIRA [Suspect]
     Active Substance: ADALIMUMAB
     Indication: PSORIASIS
     Route: 058
     Dates: start: 20140512
  2. HUMIRA [Suspect]
     Active Substance: ADALIMUMAB
     Indication: PSORIASIS
     Route: 058
     Dates: end: 20210205

REACTIONS (9)
  - Chest pain [Recovering/Resolving]
  - Bladder disorder [Recovered/Resolved]
  - Back pain [Recovering/Resolving]
  - Abdominal mass [Not Recovered/Not Resolved]
  - Dyspnoea [Recovered/Resolved]
  - Cardio-respiratory arrest [Fatal]
  - Ovarian cancer [Not Recovered/Not Resolved]
  - Cardiac disorder [Recovering/Resolving]
  - Nausea [Recovering/Resolving]

NARRATIVE: CASE EVENT DATE: 2021
